FAERS Safety Report 8045891-0 (Version None)
Quarter: 2012Q1

REPORT INFORMATION
  Report Type: 
  Country: None (occurrence: None)
  Receive Date: 20120113
  Receipt Date: 20111026
  Transmission Date: 20120608
  Serious: Yes (Death, Life-Threatening, Hospitalization, Disabling, Other)
  Sender: FDA-Public Use
  Company Number: US-GLAXOSMITHKLINE-A0951293A

PATIENT
  Age: 52 Year
  Sex: Male
  Weight: 60 kg

DRUGS (12)
  1. STEROIDS [Concomitant]
     Route: 042
  2. LOMOTIL [Concomitant]
     Dosage: 2TAB IN THE MORNING
     Route: 048
  3. CRYOPRECIPITATED AHF [Concomitant]
  4. AMICAR [Concomitant]
  5. LEXAPRO [Concomitant]
     Dosage: 10MG PER DAY
     Route: 048
  6. PERCOCET [Concomitant]
     Route: 048
  7. FLOLAN [Suspect]
     Indication: PULMONARY ARTERIAL HYPERTENSION
     Dosage: 28NGKM UNKNOWN
     Route: 042
     Dates: start: 20100301, end: 20111106
  8. DEMADEX [Concomitant]
     Dosage: 10MG PER DAY
     Route: 048
  9. ZOVIRAX [Concomitant]
     Dosage: 400MG TWICE PER DAY
     Route: 048
  10. POLYGAM S/D [Concomitant]
     Route: 042
  11. ALDACTONE [Concomitant]
     Dosage: 50MG PER DAY
     Route: 048
  12. FACTOR VII [Concomitant]

REACTIONS (3)
  - HAEMORRHAGE [None]
  - HEPATIC CIRRHOSIS [None]
  - HEPATIC FAILURE [None]
